FAERS Safety Report 16251144 (Version 1)
Quarter: 2019Q2

REPORT INFORMATION
  Report Type: Spontaneous
  Country: JP (occurrence: JP)
  Receive Date: 20190429
  Receipt Date: 20190429
  Transmission Date: 20190711
  Serious: Yes (Death)
  Sender: FDA-Public Use
  Company Number: JP-SILVERGATE PHARMACEUTICALS, INC.-2019SIL00019

PATIENT

DRUGS (1)
  1. METHOTREXATE. [Suspect]
     Active Substance: METHOTREXATE
     Indication: AUTOIMMUNE DISORDER
     Route: 065

REACTIONS (1)
  - Lymphoproliferative disorder [Fatal]
